FAERS Safety Report 10102028 (Version 1)
Quarter: 2014Q2

REPORT INFORMATION
  Report Type: Spontaneous
  Country: LB (occurrence: LB)
  Receive Date: 20140424
  Receipt Date: 20140424
  Transmission Date: 20141212
  Serious: Yes (Hospitalization)
  Sender: FDA-Public Use
  Company Number: LB-ASTELLAS-2014US004043

PATIENT
  Age: 40 Year
  Sex: Female

DRUGS (3)
  1. TARCEVA [Suspect]
     Indication: LUNG NEOPLASM MALIGNANT
     Route: 065
  2. TARCEVA [Suspect]
     Route: 065
  3. NAVELBINE [Concomitant]
     Indication: PRODUCT USED FOR UNKNOWN INDICATION
     Dosage: UNK UNK, UNKNOWN FREQ.
     Route: 065

REACTIONS (5)
  - General physical health deterioration [Unknown]
  - Pain [Unknown]
  - Decreased appetite [Unknown]
  - Vomiting [Unknown]
  - Pyrexia [Unknown]
